FAERS Safety Report 7425739-5 (Version None)
Quarter: 2011Q2

REPORT INFORMATION
  Report Type: 
  Country: None (occurrence: None)
  Receive Date: 20110418
  Receipt Date: 20110418
  Transmission Date: 20111010
  Serious: Yes (Other)
  Sender: FDA-Public Use
  Company Number: None

PATIENT
  Age: 57 Year
  Sex: Female
  Weight: 72.5755 kg

DRUGS (2)
  1. AMPYRA [Suspect]
     Indication: GAIT DISTURBANCE
     Dosage: 10 MG EVERY 12 HOURS PO
     Route: 048
     Dates: start: 20100420, end: 20110105
  2. AMPYRA [Suspect]
     Indication: MULTIPLE SCLEROSIS
     Dosage: 10 MG EVERY 12 HOURS PO
     Route: 048
     Dates: start: 20100420, end: 20110105

REACTIONS (5)
  - URINARY TRACT INFECTION [None]
  - MUSCLE SPASMS [None]
  - DYSTONIA [None]
  - MOVEMENT DISORDER [None]
  - MUSCULOSKELETAL STIFFNESS [None]
